FAERS Safety Report 13896806 (Version 1)
Quarter: 2017Q3

REPORT INFORMATION
  Report Type: Spontaneous
  Country: US (occurrence: US)
  Receive Date: 20170822
  Receipt Date: 20170822
  Transmission Date: 20171127
  Serious: Yes (Death)
  Sender: FDA-Public Use
  Company Number: None

PATIENT
  Sex: Female
  Weight: 50.4 kg

DRUGS (5)
  1. FLUOXETINE HCL 30 MG CAPSULE [Suspect]
     Active Substance: FLUOXETINE HYDROCHLORIDE
     Indication: DEPRESSION
     Dosage: ?          QUANTITY:1 CAPSULE(S);?
     Route: 048
     Dates: start: 20150916, end: 20170725
  2. ANTACID TABLETS [Concomitant]
     Active Substance: UNSPECIFIED INGREDIENT
  3. FENUGREEK [Concomitant]
     Active Substance: FENUGREEK SEED
  4. GINGER. [Concomitant]
     Active Substance: GINGER
  5. WOMEN^S ONCE DAILY [Concomitant]

REACTIONS (1)
  - Completed suicide [None]

NARRATIVE: CASE EVENT DATE: 20170725
